FAERS Safety Report 15404212 (Version 1)
Quarter: 2018Q3

REPORT INFORMATION
  Report Type: Report from Study
  Country: US (occurrence: US)
  Receive Date: 20180919
  Receipt Date: 20180919
  Transmission Date: 20181010
  Serious: Yes (Other)
  Sender: FDA-Public Use
  Company Number: US-SA-2018SA254754

PATIENT
  Age: 48 Year
  Sex: Female

DRUGS (1)
  1. ENOXAPARIN SODIUM. [Suspect]
     Active Substance: ENOXAPARIN SODIUM
     Indication: THROMBOPHLEBITIS
     Dosage: 120 MG, BID
     Route: 058
     Dates: start: 201404

REACTIONS (3)
  - Speech disorder [Not Recovered/Not Resolved]
  - Nasopharyngitis [Not Recovered/Not Resolved]
  - Dysphagia [Not Recovered/Not Resolved]
